FAERS Safety Report 5988144-4 (Version None)
Quarter: 2008Q4

REPORT INFORMATION
  Report Type: 
  Country: None (occurrence: None)
  Receive Date: 20081208
  Receipt Date: 20081208
  Transmission Date: 20090506
  Serious: Yes (Other)
  Sender: FDA-Public Use
  Company Number: None

PATIENT
  Age: 38 Year
  Sex: Female
  Weight: 58.9676 kg

DRUGS (1)
  1. AVELOX [Suspect]
     Indication: BRONCHITIS
     Dosage: 1 PILL DAILY PO
     Route: 048
     Dates: start: 20080423, end: 20080426

REACTIONS (3)
  - COMPLEX REGIONAL PAIN SYNDROME [None]
  - TENDON DISORDER [None]
  - TENDONITIS [None]
